FAERS Safety Report 6569958-9 (Version None)
Quarter: 2010Q1

REPORT INFORMATION
  Report Type: 
  Country: None (occurrence: None)
  Receive Date: 20100204
  Receipt Date: 20100126
  Transmission Date: 20100710
  Serious: Yes (Other)
  Sender: FDA-Public Use
  Company Number: DE-PURDUE-DEU_2009_0005235

PATIENT
  Sex: Female
  Weight: 99.5 kg

DRUGS (2)
  1. PALLADON RETARD 8 MG [Suspect]
     Indication: PAIN
     Dosage: 8 MG, BID
     Route: 048
     Dates: start: 20080401
  2. NOVALGIN                           /06276704/ [Concomitant]

REACTIONS (6)
  - BLOOD PRESSURE FLUCTUATION [None]
  - DECREASED APPETITE [None]
  - HOT FLUSH [None]
  - LOW DENSITY LIPOPROTEIN INCREASED [None]
  - NAUSEA [None]
  - WEIGHT INCREASED [None]
